FAERS Safety Report 4280097-2 (Version None)
Quarter: 2004Q1

REPORT INFORMATION
  Report Type: 
  Country: None (occurrence: None)
  Receive Date: 20040126
  Receipt Date: 20031029
  Transmission Date: 20041129
  Serious: Yes (Life-Threatening, Hospitalization, Other)
  Sender: FDA-Public Use
  Company Number: M2004.6856

PATIENT

DRUGS (2)
  1. RANITIDINE [Suspect]
     Indication: ASPIRATION
     Dosage: 5 MG, I.V.
     Route: 042
  2. RANITIDINE [Suspect]
     Indication: PROPHYLAXIS
     Dosage: 5 MG, I.V.
     Route: 042

REACTIONS (7)
  - ANAPHYLACTIC REACTION [None]
  - APGAR SCORE LOW [None]
  - CAESAREAN SECTION [None]
  - CONVULSION [None]
  - DEVELOPMENTAL DELAY [None]
  - FOETAL HEART RATE DECREASED [None]
  - MATERNAL DRUGS AFFECTING FOETUS [None]
